FAERS Safety Report 4769944-5 (Version None)
Quarter: 2005Q3

REPORT INFORMATION
  Report Type: 
  Country: None (occurrence: None)
  Receive Date: 20050914
  Receipt Date: 20050914
  Transmission Date: 20060218
  Serious: Yes (Hospitalization, Other)
  Sender: FDA-Public Use
  Company Number: None

PATIENT
  Age: 52 Year
  Sex: Male
  Weight: 102.6 kg

DRUGS (1)
  1. RIFAMPIN [Suspect]
     Dosage: 300 MG BID
     Dates: start: 20050603, end: 20050623

REACTIONS (1)
  - NEUTROPENIA [None]
